FAERS Safety Report 5857723-7 (Version None)
Quarter: 2008Q3

REPORT INFORMATION
  Report Type: 
  Country: None (occurrence: None)
  Receive Date: 20080826
  Receipt Date: 20080813
  Transmission Date: 20090109
  Serious: Yes (Hospitalization)
  Sender: FDA-Public Use
  Company Number: US-BAYER-200813362BCC

PATIENT
  Age: 50 Year
  Sex: Female
  Weight: 49 kg

DRUGS (4)
  1. MILK OF MAGNESIA TAB [Suspect]
     Indication: CONSTIPATION
     Route: 048
     Dates: start: 20080613, end: 20080701
  2. DOCUSATE [Suspect]
     Indication: CONSTIPATION
     Route: 048
     Dates: start: 20080614, end: 20080629
  3. LISINOPRIL [Concomitant]
     Route: 048
     Dates: start: 20060101
  4. IBUPROFEN [Concomitant]
     Route: 048
     Dates: start: 20060101

REACTIONS (5)
  - BLOOD POTASSIUM DECREASED [None]
  - FATIGUE [None]
  - GROIN PAIN [None]
  - MUSCLE SPASMS [None]
  - PYREXIA [None]
